FAERS Safety Report 5773106-2 (Version None)
Quarter: 2008Q2

REPORT INFORMATION
  Report Type: 
  Country: None (occurrence: None)
  Receive Date: 20080523
  Receipt Date: 20080514
  Transmission Date: 20081010
  Serious: No
  Sender: FDA-Public Use
  Company Number: AEUSA200800115

PATIENT
  Age: 63 Year
  Sex: Male

DRUGS (7)
  1. GAMUNEX [Suspect]
     Indication: AMYOTROPHY
     Dosage: 70 GM; QM; IV
     Route: 042
     Dates: end: 20080502
  2. GAMUNEX [Suspect]
     Indication: NEUROPATHY PERIPHERAL
     Dosage: 70 GM; QM; IV
     Route: 042
     Dates: end: 20080502
  3. PRAVACHOL (CON.) [Concomitant]
  4. CARDIZEM /00489702/ (CON.) [Concomitant]
  5. MULTIVITAMINS (CON.) [Concomitant]
  6. ASPIRIN /00002703/ (CON.) [Concomitant]
  7. FISH OIL (CON.) [Concomitant]

REACTIONS (3)
  - CONJUNCTIVITIS [None]
  - EYE HAEMORRHAGE [None]
  - PHARMACEUTICAL PRODUCT COMPLAINT [None]
